FAERS Safety Report 9982667 (Version 1)
Quarter: 2014Q1

REPORT INFORMATION
  Report Type: Spontaneous
  Country: US (occurrence: None)
  Receive Date: 20140128
  Receipt Date: 20140128
  Transmission Date: 20141002
  Serious: Yes (Other)
  Sender: FDA-Public Use
  Company Number: A-NJ2013-80727

PATIENT
  Age: 69 Year
  Sex: Female

DRUGS (2)
  1. TRACLEER [Suspect]
     Indication: PULMONARY ARTERIAL HYPERTENSION
     Route: 048
     Dates: start: 20121217, end: 20130226
  2. SILDENAFIL (SILDENAFIL CITRATE) [Concomitant]

REACTIONS (3)
  - Anaemia [None]
  - General physical health deterioration [None]
  - No therapeutic response [None]
